FAERS Safety Report 19628311 (Version 1)
Quarter: 2021Q3

REPORT INFORMATION
  Report Type: Spontaneous
  Country: US (occurrence: US)
  Receive Date: 20210728
  Receipt Date: 20210728
  Transmission Date: 20211014
  Serious: Yes (Death)
  Sender: FDA-Public Use
  Company Number: US-PFIZER INC-2021908027

PATIENT
  Age: 53 Year
  Sex: Female

DRUGS (25)
  1. LACOSAMIDE. [Suspect]
     Active Substance: LACOSAMIDE
     Indication: EPILEPSY
     Dosage: HIGH?DOSE
  2. PENTAMIDINE [Concomitant]
     Active Substance: PENTAMIDINE
     Indication: ENTEROCOCCAL BACTERAEMIA
     Dosage: UNK
  3. GLUCOSE [Suspect]
     Active Substance: DEXTROSE
     Indication: HYPERAMMONAEMIA
     Dosage: UNK
     Route: 042
  4. AVIBACTAM/CEFTAZIDIME [Concomitant]
     Active Substance: AVIBACTAM SODIUM\CEFTAZIDIME
     Indication: ENTEROCOCCAL BACTERAEMIA
     Dosage: UNK
  5. ACYCLOVIR [ACICLOVIR] [Concomitant]
     Active Substance: ACYCLOVIR
     Indication: ENTEROCOCCAL BACTERAEMIA
     Dosage: UNK
  6. LINEZOLID. [Concomitant]
     Active Substance: LINEZOLID
     Indication: ENTEROCOCCAL BACTERAEMIA
     Dosage: UNK
  7. METHYLPREDNISOLONE. [Concomitant]
     Active Substance: METHYLPREDNISOLONE
     Indication: CYTOKINE RELEASE SYNDROME
     Dosage: ONE GRAM PER DAY
  8. LEVOFLOXACIN. [Suspect]
     Active Substance: LEVOFLOXACIN
     Indication: HYPERAMMONAEMIA
     Dosage: UNK
  9. LEVOFLOXACIN. [Suspect]
     Active Substance: LEVOFLOXACIN
     Indication: PROPHYLAXIS
  10. PENTAMIDINE [Concomitant]
     Active Substance: PENTAMIDINE
     Indication: PROPHYLAXIS
  11. ISAVUCONAZOLE [Concomitant]
     Active Substance: ISAVUCONAZOLE
     Indication: ENTEROCOCCAL BACTERAEMIA
     Dosage: UNK
  12. MEROPENEM. [Concomitant]
     Active Substance: MEROPENEM
     Indication: ENTEROCOCCAL BACTERAEMIA
     Dosage: UNK
  13. ARGININE HCL [Suspect]
     Active Substance: ARGININE HYDROCHLORIDE
     Indication: HYPERAMMONAEMIA
     Dosage: UNK
  14. PROPOFOL. [Suspect]
     Active Substance: PROPOFOL
     Indication: EPILEPSY
     Dosage: HIGH?DOSE
  15. DOXYCYCLINE HYCLATE. [Suspect]
     Active Substance: DOXYCYCLINE HYCLATE
     Indication: HYPERAMMONAEMIA
     Dosage: UNK
  16. SODIUM PHENYLBUTYRATE. [Suspect]
     Active Substance: SODIUM PHENYLBUTYRATE
     Indication: HYPERAMMONAEMIA
     Dosage: UNK
  17. FOSCARNET [Concomitant]
     Active Substance: FOSCARNET
     Indication: PROPHYLAXIS
  18. LEVETIRACETAM. [Suspect]
     Active Substance: LEVETIRACETAM
     Indication: EPILEPSY
     Dosage: HIGH?DOSE
  19. LACTULOSE. [Suspect]
     Active Substance: LACTULOSE
     Indication: HYPERAMMONAEMIA
     Dosage: UNK
     Route: 048
  20. LEVOCARNITINE. [Suspect]
     Active Substance: LEVOCARNITINE
     Indication: HYPERAMMONAEMIA
     Dosage: UNK
  21. FOSCARNET [Concomitant]
     Active Substance: FOSCARNET
     Indication: ENTEROCOCCAL BACTERAEMIA
     Dosage: UNK
  22. ISAVUCONAZOLE [Concomitant]
     Active Substance: ISAVUCONAZOLE
     Indication: PROPHYLAXIS
  23. PENTOBARBITAL. [Concomitant]
     Active Substance: PENTOBARBITAL
     Indication: EPILEPSY
     Dosage: UNK
  24. AMPHOTERICIN B. [Concomitant]
     Active Substance: AMPHOTERICIN B
     Indication: ENTEROCOCCAL BACTERAEMIA
     Dosage: UNK
  25. OXYGEN. [Concomitant]
     Active Substance: OXYGEN
     Indication: HYPOXIA
     Dosage: 2 L OF CONTINUOUS OXYGEN VIA NASAL CANNULA
     Route: 045

REACTIONS (1)
  - Drug ineffective [Fatal]
